FAERS Safety Report 22092783 (Version 1)
Quarter: 2023Q1

REPORT INFORMATION
  Report Type: Spontaneous
  Country: FR (occurrence: FR)
  Receive Date: 20230314
  Receipt Date: 20230314
  Transmission Date: 20230418
  Serious: Yes (Hospitalization)
  Sender: FDA-Public Use
  Company Number: None

PATIENT

DRUGS (4)
  1. EPIVIR [Suspect]
     Active Substance: LAMIVUDINE
     Indication: Congenital HIV infection
     Dosage: 9.5 ML, BID
     Route: 048
     Dates: start: 202204
  2. ZIAGEN [Suspect]
     Active Substance: ABACAVIR SULFATE
     Indication: Congenital HIV infection
     Dosage: 8 ML, BID
     Route: 048
     Dates: start: 202204
  3. NORVIR [Suspect]
     Active Substance: RITONAVIR
     Indication: Congenital HIV infection
     Dosage: 100 MG, QD
     Route: 048
     Dates: start: 202204
  4. PREZISTA [Suspect]
     Active Substance: DARUNAVIR ETHANOLATE
     Indication: Congenital HIV infection
     Dosage: 600 MG, QD
     Route: 048
     Dates: start: 202204, end: 20230113

REACTIONS (1)
  - Eosinophilia [Recovering/Resolving]

NARRATIVE: CASE EVENT DATE: 20220914
